FAERS Safety Report 5411471-6 (Version None)
Quarter: 2007Q3

REPORT INFORMATION
  Report Type: 
  Country: None (occurrence: None)
  Receive Date: 20070810
  Receipt Date: 20070730
  Transmission Date: 20080115
  Serious: Yes (Hospitalization)
  Sender: FDA-Public Use
  Company Number: US-SHR-US-2007-018689

PATIENT
  Age: 83 Year
  Sex: Female
  Weight: 63.492 kg

DRUGS (18)
  1. BETASERON [Suspect]
     Indication: SECONDARY PROGRESSIVE MULTIPLE SCLEROSIS
     Dosage: 8 MIU, EVERY 2D
     Route: 058
     Dates: start: 20050511, end: 20070510
  2. BETASERON [Suspect]
     Dosage: 8 MIU, EVERY 2D
     Route: 058
     Dates: start: 20070513
  3. TIZANIDINE HCL [Concomitant]
  4. ACTONEL [Concomitant]
     Dosage: 35 MG, 1X/WEEK
  5. SYNTHROID [Concomitant]
     Dosage: 50 A?G/DAY, UNK
  6. OXYTROL [Concomitant]
     Dosage: 3.9 MG, 2X/WEEK
     Route: 062
  7. VICODIN [Concomitant]
     Dosage: 5/500, 1 TAB AT BEDTIME
  8. XALATAN [Concomitant]
     Dosage: 1 DF, BED T., R EYE
  9. COSOPT [Concomitant]
     Dosage: 1 DF, 2X/DAY R EYE
  10. ASPIRIN [Concomitant]
     Dosage: 81 MG/D, UNK
  11. CALTRATE [Concomitant]
     Dosage: 1 TAB(S), 2X/DAY
  12. COLACE [Concomitant]
     Dosage: 100 MG, 2X/DAY
  13. VITAMIN CAP [Concomitant]
     Dosage: 1 TAB(S), 1X/DAY
  14. TYLENOL (CAPLET) [Concomitant]
     Dosage: 650 MG, 4X/DAY
  15. FLUOCINOLONE ACETONIDE [Concomitant]
  16. HYDROCORTISONE [Concomitant]
     Dosage: UNK, AS REQ'D
  17. ZANAFLEX [Concomitant]
     Dosage: 2 MG, 3X/DAY
     Route: 048
  18. MILK OF MAGNESIA [Concomitant]
     Dosage: 30 ML, AS REQ'D

REACTIONS (18)
  - AORTIC STENOSIS [None]
  - ARRHYTHMIA [None]
  - ASTHENIA [None]
  - ATELECTASIS [None]
  - BRADYCARDIA [None]
  - DECREASED APPETITE [None]
  - FEELING ABNORMAL [None]
  - GENERALISED OEDEMA [None]
  - HEART RATE DECREASED [None]
  - HYDRONEPHROSIS [None]
  - HYPERKALAEMIA [None]
  - HYPOTENSION [None]
  - LETHARGY [None]
  - PLEURAL EFFUSION [None]
  - PRESYNCOPE [None]
  - RENAL ATROPHY [None]
  - RENAL FAILURE ACUTE [None]
  - VOMITING [None]
